FAERS Safety Report 25702119 (Version 1)
Quarter: 2025Q3

REPORT INFORMATION
  Report Type: Spontaneous
  Country: GB (occurrence: GB)
  Receive Date: 20250819
  Receipt Date: 20250819
  Transmission Date: 20251021
  Serious: Yes (Hospitalization)
  Sender: PFIZER
  Company Number: GB-ROCHE-1159109

PATIENT
  Age: 58 Year
  Sex: Female
  Weight: 80 kg

DRUGS (7)
  1. DOCETAXEL [Suspect]
     Active Substance: DOCETAXEL
     Indication: Breast cancer
     Dosage: LAST DOSE PRIOR TO SAE ON 31OCT2012
     Route: 042
     Dates: start: 20121010
  2. DOCETAXEL [Suspect]
     Active Substance: DOCETAXEL
     Dosage: 130 MG, 1X/DAY
     Route: 042
     Dates: start: 20121121
  3. INVESTIGATIONAL PRODUCT [Suspect]
     Active Substance: INVESTIGATIONAL PRODUCT
     Indication: Breast cancer
     Dosage: LAST DOSE PRIOR TO SAE ON 31OCT2012
     Route: 042
     Dates: start: 20121010
  4. HERCEPTIN [Suspect]
     Active Substance: TRASTUZUMAB
     Indication: Breast cancer
     Dosage: LAST DOSE PRIOR TO SAE ON 31OCT2012
     Route: 042
     Dates: start: 20121010
  5. CIPROFLOXACIN [Concomitant]
     Active Substance: CIPROFLOXACIN
     Dates: start: 20121101, end: 20121105
  6. METOCLOPRAMIDE [Concomitant]
     Active Substance: METOCLOPRAMIDE
     Dates: start: 20121031, end: 20121105
  7. FLUOXETINE [Concomitant]
     Active Substance: FLUOXETINE HYDROCHLORIDE
     Dates: start: 2011

REACTIONS (1)
  - Malaise [Recovered/Resolved]

NARRATIVE: CASE EVENT DATE: 20121103
